FAERS Safety Report 5759795-7 (Version None)
Quarter: 2008Q2

REPORT INFORMATION
  Report Type: 
  Country: None (occurrence: None)
  Receive Date: 20080605
  Receipt Date: 20080530
  Transmission Date: 20081010
  Serious: Yes (Other)
  Sender: FDA-Public Use
  Company Number: B0523525A

PATIENT
  Age: 46 Year
  Sex: Female
  Weight: 95 kg

DRUGS (4)
  1. THEOFYLLINE [Suspect]
     Indication: ASTHMA
     Route: 042
     Dates: start: 20080526
  2. DEXAMETHASONE [Suspect]
     Indication: ASTHMA
     Route: 042
     Dates: start: 20080526
  3. SERETIDE [Suspect]
     Indication: ASTHMA
     Route: 055
     Dates: start: 20080526
  4. XYZAL [Concomitant]
     Dosage: 5MG PER DAY
     Route: 048
     Dates: start: 20040101

REACTIONS (2)
  - AMAUROSIS FUGAX [None]
  - MIGRAINE [None]
